FAERS Safety Report 9692979 (Version 1)
Quarter: 2013Q4

REPORT INFORMATION
  Report Type: Spontaneous
  Country: US (occurrence: None)
  Receive Date: 20131115
  Receipt Date: 20131115
  Transmission Date: 20140711
  Serious: No
  Sender: FDA-Public Use
  Company Number: None

PATIENT
  Age: 63 None
  Sex: 0

DRUGS (1)
  1. DONNATAL [Suspect]
     Indication: ABDOMINAL DISCOMFORT
     Dosage: 1 TEASPOON 4 TIMES A DAY BY MOUTH
     Route: 048
     Dates: start: 20131031, end: 20131101

REACTIONS (3)
  - Pruritus [None]
  - Erythema [None]
  - Skin exfoliation [None]
